FAERS Safety Report 6748997-9 (Version None)
Quarter: 2010Q2

REPORT INFORMATION
  Report Type: 
  Country: None (occurrence: None)
  Receive Date: 20100601
  Receipt Date: 20100521
  Transmission Date: 20101027
  Serious: Yes (Other)
  Sender: FDA-Public Use
  Company Number: PHHY2010US33286

PATIENT
  Sex: Male

DRUGS (2)
  1. TRILEPTAL [Suspect]
     Dosage: 300 MG, TID
  2. TRILEPTAL [Suspect]
     Dosage: 600 MG/DAY

REACTIONS (8)
  - AGGRESSION [None]
  - ANGER [None]
  - ANXIETY [None]
  - DEPRESSION [None]
  - DISCOMFORT [None]
  - LACK OF SPONTANEOUS SPEECH [None]
  - MENTAL IMPAIRMENT [None]
  - MOOD SWINGS [None]
